FAERS Safety Report 8323409-2 (Version None)
Quarter: 2012Q2

REPORT INFORMATION
  Report Type: 
  Country: None (occurrence: None)
  Receive Date: 20120430
  Receipt Date: 20120425
  Transmission Date: 20120825
  Serious: Yes (Hospitalization, Other)
  Sender: FDA-Public Use
  Company Number: DE-ELI_LILLY_AND_COMPANY-DE201204008530

PATIENT
  Age: 66 Year
  Sex: Female

DRUGS (3)
  1. LEVEMIR [Concomitant]
     Dosage: 26 U, EACH MORNING
  2. BYDUREON [Suspect]
     Dosage: 2 MG, WEEKLY (1/W)
     Route: 058
     Dates: end: 20120401
  3. LEVEMIR [Concomitant]
     Dosage: 30 U, EACH EVENING

REACTIONS (3)
  - OFF LABEL USE [None]
  - BLOOD GLUCOSE INCREASED [None]
  - SALIVARY GLAND RESECTION [None]
